FAERS Safety Report 7117999-5 (Version None)
Quarter: 2010Q4

REPORT INFORMATION
  Report Type: 
  Country: None (occurrence: None)
  Receive Date: 20101108
  Receipt Date: 20101025
  Transmission Date: 20110411
  Serious: Yes (Other)
  Sender: FDA-Public Use
  Company Number: 2010SP056924

PATIENT
  Sex: Male

DRUGS (1)
  1. REBETOL [Suspect]
     Indication: PRODUCT USED FOR UNKNOWN INDICATION

REACTIONS (3)
  - HAEMOGLOBIN DECREASED [None]
  - ORAL INFECTION [None]
  - SWOLLEN TONGUE [None]
